FAERS Safety Report 11847966 (Version 6)
Quarter: 2017Q2

REPORT INFORMATION
  Report Type: Report from Study
  Country: US (occurrence: US)
  Receive Date: 20151217
  Receipt Date: 20170509
  Transmission Date: 20170829
  Serious: Yes (Hospitalization)
  Sender: FDA-Public Use
  Company Number: US-ACTELION-A-US2014-102021

PATIENT
  Age: 67 Year
  Sex: Female
  Weight: 80.73 kg

DRUGS (2)
  1. ADCIRCA [Concomitant]
     Active Substance: TADALAFIL
  2. OPSUMIT [Suspect]
     Active Substance: MACITENTAN
     Indication: PULMONARY ARTERIAL HYPERTENSION
     Dosage: 10 MG, QD
     Route: 048
     Dates: start: 20131126

REACTIONS (7)
  - Chronic obstructive pulmonary disease [Unknown]
  - Dyspnoea [Unknown]
  - Bronchitis [Unknown]
  - Pneumonia [Unknown]
  - Tongue spasm [Unknown]
  - Respiratory distress [Unknown]
  - Muscle spasms [Unknown]

NARRATIVE: CASE EVENT DATE: 201406
